FAERS Safety Report 20471023 (Version 9)
Quarter: 2022Q4

REPORT INFORMATION
  Report Type: Report from Study
  Country: NL (occurrence: None)
  Receive Date: 20220214
  Receipt Date: 20221223
  Transmission Date: 20230113
  Serious: Yes (Hospitalization)
  Sender: FDA-Public Use
  Company Number: NL-ROCHE-3022902

PATIENT
  Age: 58 Year
  Sex: Female
  Weight: 73.8 kg

DRUGS (24)
  1. ATEZOLIZUMAB [Suspect]
     Active Substance: ATEZOLIZUMAB
     Indication: Pancreatic carcinoma metastatic
     Dosage: DOSE LAST STUDY DRUG ADMIN PRIOR AE/SAE IS 840 MG. START DATE OF MOST RECENT DOSE OF STUDY DRUG PRIO
     Route: 041
     Dates: start: 20211123
  2. OMEPRAZOLE [Concomitant]
     Active Substance: OMEPRAZOLE
     Indication: Nausea
     Route: 048
     Dates: start: 20211123
  3. OMEPRAZOLE [Concomitant]
     Active Substance: OMEPRAZOLE
     Dosage: ONGOING YES?GIVEN FOR PROPHYLAXIS YES
     Route: 048
  4. OXYCODONE [Concomitant]
     Active Substance: OXYCODONE
     Route: 048
     Dates: start: 20211014
  5. OXYCODONE [Concomitant]
     Active Substance: OXYCODONE
     Route: 048
     Dates: start: 20211014
  6. HYDROCORTISONE [Concomitant]
     Active Substance: HYDROCORTISONE
     Route: 042
     Dates: start: 20220111, end: 20220111
  7. HYDROCORTISONE [Concomitant]
     Active Substance: HYDROCORTISONE
     Route: 042
     Dates: start: 20220201, end: 20220201
  8. OXALIPLATIN [Concomitant]
     Active Substance: OXALIPLATIN
     Dosage: DRUG DOSE FIRST ADMINISTERED IS UNKNOWN
     Dates: start: 20190726
  9. IRINOTECAN [Concomitant]
     Active Substance: IRINOTECAN
     Dosage: DRUG DOSE FIRST ADMINISTERED IS UNKNOWN
     Dates: start: 20190726
  10. LEUCOVORIN [Concomitant]
     Active Substance: LEUCOVORIN
     Dosage: DRUG DOSE FIRST ADMINISTERED IS UNKNOWN
     Dates: start: 20190726
  11. FLUOROURACIL [Concomitant]
     Active Substance: FLUOROURACIL
     Dosage: DRUG DOSE FIRST ADMINISTERED IS UNKNOWN
     Dates: start: 20190726
  12. METOCLOPRAMIDE [Concomitant]
     Active Substance: METOCLOPRAMIDE
     Indication: Nausea
     Route: 048
     Dates: start: 20211123
  13. METOCLOPRAMIDE [Concomitant]
     Active Substance: METOCLOPRAMIDE
     Indication: Infusion related reaction
     Route: 048
     Dates: start: 20211208
  14. METOCLOPRAMIDE [Concomitant]
     Active Substance: METOCLOPRAMIDE
     Route: 042
     Dates: start: 20220111, end: 20220111
  15. METOCLOPRAMIDE [Concomitant]
     Active Substance: METOCLOPRAMIDE
     Route: 042
     Dates: start: 20220201, end: 20220201
  16. METOCLOPRAMIDE [Concomitant]
     Active Substance: METOCLOPRAMIDE
     Dosage: ONGOING YES?GIVEN FOR PROPHYLAXIS YES
     Route: 048
  17. METOCLOPRAMIDE [Concomitant]
     Active Substance: METOCLOPRAMIDE
     Route: 042
     Dates: start: 20220201, end: 20220201
  18. ACETAMINOPHEN [Concomitant]
     Active Substance: ACETAMINOPHEN
     Indication: Back pain
     Route: 048
     Dates: start: 20220201, end: 20220201
  19. ACETAMINOPHEN [Concomitant]
     Active Substance: ACETAMINOPHEN
     Dosage: ONGOING YES
     Route: 048
  20. CLEMASTINE [Concomitant]
     Active Substance: CLEMASTINE
     Route: 042
     Dates: start: 20220201, end: 20220201
  21. CLEMASTINE [Concomitant]
     Active Substance: CLEMASTINE
     Route: 042
     Dates: start: 20220111, end: 20220111
  22. SPIRONOLACTONE [Concomitant]
     Active Substance: SPIRONOLACTONE
     Indication: Pleural effusion
     Dosage: GIVEN FOR PROPHYLAXIS YES
     Route: 048
     Dates: start: 20220121, end: 20220418
  23. MOVICOLON [Concomitant]
     Active Substance: POLYETHYLENE GLYCOL 3350\POTASSIUM CHLORIDE\SODIUM BICARBONATE\SODIUM CHLORIDE
     Indication: Constipation
     Dosage: 1 SACHET?ONGOING YES
     Route: 048
     Dates: start: 20210727
  24. FUROSEMIDE [Concomitant]
     Active Substance: FUROSEMIDE
     Route: 048
     Dates: start: 20211210, end: 20220322

REACTIONS (1)
  - Cytokine release syndrome [Recovered/Resolved]

NARRATIVE: CASE EVENT DATE: 20220208
